FAERS Safety Report 12416204 (Version 2)
Quarter: 2016Q2

REPORT INFORMATION
  Report Type: Spontaneous
  Country: US (occurrence: US)
  Receive Date: 20160530
  Receipt Date: 20160601
  Transmission Date: 20160815
  Serious: Yes (Other)
  Sender: FDA-Public Use
  Company Number: US-PFIZER INC-2016269372

PATIENT
  Age: 48 Year
  Sex: Female
  Weight: 62.59 kg

DRUGS (14)
  1. TIROSINT [Suspect]
     Active Substance: LEVOTHYROXINE SODIUM
     Dosage: 88 UG, DAILY
     Route: 048
     Dates: start: 20160318, end: 20160330
  2. SINGULAIR [Concomitant]
     Active Substance: MONTELUKAST SODIUM
     Dosage: UNK
  3. INDERAL [Suspect]
     Active Substance: PROPRANOLOL HYDROCHLORIDE
     Dosage: UNK, DAILY (20 UG 1/4 TO 1/2 TABLET )
     Route: 048
     Dates: start: 20160414, end: 20160421
  4. TIROSINT [Suspect]
     Active Substance: LEVOTHYROXINE SODIUM
     Indication: THYROIDECTOMY
     Dosage: UNK (100MCG EVERY THIRD DAY ALTERNATING 88MCG ON OTHER DAYS)
     Route: 048
     Dates: start: 20160307, end: 20160313
  5. TIROSINT [Suspect]
     Active Substance: LEVOTHYROXINE SODIUM
     Dosage: 88 UG, 1X/DAY
     Route: 048
     Dates: start: 2016, end: 201603
  6. XOPENEX [Concomitant]
     Active Substance: LEVALBUTEROL HYDROCHLORIDE
     Dosage: UNK
  7. TIROSINT [Suspect]
     Active Substance: LEVOTHYROXINE SODIUM
     Dosage: 75 UG, DAILY
     Route: 048
     Dates: start: 20160330, end: 20160331
  8. TIROSINT [Suspect]
     Active Substance: LEVOTHYROXINE SODIUM
     Dosage: 75 UG, DAILY (50MCG IN THE MORNING, 25MCG IN THE EVENING)
     Route: 048
     Dates: start: 201604
  9. TIROSINT [Suspect]
     Active Substance: LEVOTHYROXINE SODIUM
     Dosage: 75 UG, DAILY (50MCG IN THE MORNING, 25MCG IN THE EVENING)
     Dates: start: 201604
  10. PROTONIX [Concomitant]
     Active Substance: PANTOPRAZOLE SODIUM
     Dosage: UNK
  11. TIROSINT [Suspect]
     Active Substance: LEVOTHYROXINE SODIUM
     Dosage: UNK (88MCG DAILY FOR TWO WEEKS THEN EVERY THIRD DAY TO TAKE 100MCG)
     Route: 048
     Dates: start: 2016, end: 20160316
  12. TIROSINT [Suspect]
     Active Substance: LEVOTHYROXINE SODIUM
     Dosage: 25 UG, 3X/DAY (25MCG THREE TIMES DAILY, TWO DOSES BEFORE LUNCH AND ONE IN THE AFTERNOON)
     Route: 048
     Dates: start: 20160414
  13. ALLEGRA [Concomitant]
     Active Substance: FEXOFENADINE HYDROCHLORIDE
     Dosage: UNK
  14. QVAR INHALER [Concomitant]
     Dosage: UNK
     Route: 055

REACTIONS (15)
  - Dehydration [Unknown]
  - Dyspnoea [Unknown]
  - Tinnitus [Unknown]
  - Blood pressure increased [Unknown]
  - Anxiety [Unknown]
  - Nausea [Unknown]
  - Diarrhoea [Recovering/Resolving]
  - Palpitations [Unknown]
  - Heart rate increased [Unknown]
  - Thyroid function test abnormal [Unknown]
  - Chest pain [Unknown]
  - Weight decreased [Unknown]
  - Fatigue [Unknown]
  - Decreased appetite [Unknown]
  - Asthenia [Unknown]

NARRATIVE: CASE EVENT DATE: 2016
